FAERS Safety Report 12542733 (Version 1)
Quarter: 2016Q3

REPORT INFORMATION
  Report Type: Spontaneous
  Country: US (occurrence: US)
  Receive Date: 20160709
  Receipt Date: 20160709
  Transmission Date: 20161109
  Serious: Yes (Other)
  Sender: FDA-Public Use
  Company Number: US-AMGEN-USASP2016086743

PATIENT
  Age: 90 Year
  Sex: Male

DRUGS (1)
  1. PROLIA [Suspect]
     Active Substance: DENOSUMAB
     Indication: PRODUCT USED FOR UNKNOWN INDICATION
     Dosage: UNK
     Route: 065
     Dates: start: 2013

REACTIONS (11)
  - Walking aid user [Unknown]
  - Bronchitis [Recovering/Resolving]
  - Fatigue [Unknown]
  - Blood potassium abnormal [Unknown]
  - Urinary incontinence [Unknown]
  - Muscle rupture [Unknown]
  - Muscular weakness [Unknown]
  - Bone density abnormal [Unknown]
  - Hip fracture [Unknown]
  - Pain [Unknown]
  - Back pain [Unknown]

NARRATIVE: CASE EVENT DATE: 2014
